FAERS Safety Report 9347207 (Version 1)
Quarter: 2013Q2

REPORT INFORMATION
  Report Type: Report from Study
  Country: CA (occurrence: CA)
  Receive Date: 20130613
  Receipt Date: 20130613
  Transmission Date: 20140414
  Serious: Yes (Death)
  Sender: FDA-Public Use
  Company Number: CA-ABBOTT-13P-028-1103011-00

PATIENT
  Sex: Male
  Weight: 79.45 kg

DRUGS (1)
  1. LUPRON DEPOT [Suspect]
     Indication: PROSTATE CANCER
     Dates: start: 20100128

REACTIONS (2)
  - Hepatic cancer [Fatal]
  - Pancreatic carcinoma [Fatal]
